FAERS Safety Report 6295766-2 (Version None)
Quarter: 2009Q3

REPORT INFORMATION
  Report Type: 
  Country: None (occurrence: None)
  Receive Date: 20090804
  Receipt Date: 20090724
  Transmission Date: 20100115
  Serious: Yes (Life-Threatening, Hospitalization)
  Sender: FDA-Public Use
  Company Number: RU-PFIZER INC-2009165626

PATIENT
  Age: 65 Year

DRUGS (6)
  1. CELECOXIB [Suspect]
     Indication: OSTEOARTHRITIS
     Dosage: 200 MG, 2X/DAY
     Route: 048
     Dates: start: 20080926, end: 20090119
  2. AMOXICILLIN TRIHYDRATE [Concomitant]
     Route: 048
     Dates: start: 20090124, end: 20090131
  3. ACETYLCYSTEINE [Concomitant]
     Route: 048
     Dates: start: 20090124, end: 20090131
  4. FENOTEROL [Concomitant]
     Route: 048
     Dates: start: 20081225, end: 20090131
  5. CAPTOPRIL [Concomitant]
     Route: 048
     Dates: start: 20060101, end: 20090119
  6. METHYLDOPA [Concomitant]
     Route: 048
     Dates: start: 20090119

REACTIONS (1)
  - ARRHYTHMIA [None]
